FAERS Safety Report 7676884-0 (Version None)
Quarter: 2011Q3

REPORT INFORMATION
  Report Type: 
  Country: None (occurrence: None)
  Receive Date: 20110811
  Receipt Date: 20110802
  Transmission Date: 20111222
  Serious: Yes (Hospitalization)
  Sender: FDA-Public Use
  Company Number: DE-SANOFI-AVENTIS-2010SA073559

PATIENT
  Age: 80 Year
  Sex: Male
  Weight: 82 kg

DRUGS (7)
  1. DRONEDARONE HCL [Suspect]
     Indication: ATRIAL FIBRILLATION
     Route: 048
     Dates: start: 20101202
  2. EMBOLEX [Concomitant]
     Dosage: DOSE:1 UNIT(S)
     Route: 065
     Dates: end: 20101205
  3. DELIX PLUS [Concomitant]
     Dosage: 5/25 MG/DAY
  4. METOPROLOL TARTRATE [Concomitant]
  5. LERCANIDIPINE [Concomitant]
  6. MARCUMAR [Concomitant]
  7. ALLOPURINOL [Concomitant]

REACTIONS (1)
  - PRESYNCOPE [None]
